FAERS Safety Report 5514883-5 (Version None)
Quarter: 2007Q4

REPORT INFORMATION
  Report Type: 
  Country: None (occurrence: None)
  Receive Date: 20071113
  Receipt Date: 20060919
  Transmission Date: 20080405
  Serious: No
  Sender: FDA-Public Use
  Company Number: A0620690A

PATIENT
  Age: 37 Year
  Sex: Female

DRUGS (8)
  1. COREG [Suspect]
     Dosage: 12.5MG TWICE PER DAY
     Route: 048
     Dates: start: 20060701
  2. DIGITEK [Concomitant]
  3. LASIX [Concomitant]
  4. VASOTEC [Concomitant]
  5. ASPIRIN [Concomitant]
  6. LEXAPRO [Concomitant]
  7. SINGULAIR [Concomitant]
  8. ADVAIR DISKUS 100/50 [Concomitant]

REACTIONS (1)
  - FATIGUE [None]
